FAERS Safety Report 9930479 (Version 1)
Quarter: 2014Q1

REPORT INFORMATION
  Report Type: Spontaneous
  Country: US (occurrence: US)
  Receive Date: 20140227
  Receipt Date: 20140227
  Transmission Date: 20141002
  Serious: No
  Sender: FDA-Public Use
  Company Number: US-AMGEN-USASP2013087186

PATIENT
  Age: 83 Year
  Sex: Female

DRUGS (8)
  1. ENBREL [Suspect]
     Indication: RHEUMATOID ARTHRITIS
     Dosage: 50 MG, QWK
     Route: 058
     Dates: start: 201307, end: 201310
  2. METHOTREXATE [Concomitant]
     Dosage: UNK
  3. FOLIC ACID [Concomitant]
     Dosage: UNK
  4. LEUCOVORIN                         /00566701/ [Concomitant]
     Dosage: UNK
  5. ACTONEL [Concomitant]
     Dosage: UNK
  6. AMOXICILLIN [Concomitant]
     Dosage: UNK
  7. ALEVE [Concomitant]
     Dosage: UNK
  8. VITAMIN D3 [Concomitant]
     Dosage: UNK

REACTIONS (1)
  - Sinusitis [Unknown]
